FAERS Safety Report 17344497 (Version 2)
Quarter: 2020Q1

REPORT INFORMATION
  Report Type: Spontaneous
  Country: JP (occurrence: JP)
  Receive Date: 20200129
  Receipt Date: 20200227
  Transmission Date: 20200409
  Serious: Yes (Other)
  Sender: FDA-Public Use
  Company Number: JP-JNJFOC-20200132895

PATIENT
  Age: 21 Year
  Sex: Male
  Weight: 57 kg

DRUGS (7)
  1. KANAMYCIN MONOSULFATE [Concomitant]
     Indication: TUBERCULOSIS
     Route: 065
     Dates: start: 20191018
  2. SIRTURO [Suspect]
     Active Substance: BEDAQUILINE FUMARATE
     Route: 048
     Dates: start: 20191101
  3. DELAMANID [Concomitant]
     Active Substance: DELAMANID
     Indication: TUBERCULOSIS
     Route: 048
     Dates: start: 20191018
  4. LINEZOLID. [Concomitant]
     Active Substance: LINEZOLID
     Indication: TUBERCULOSIS
     Dosage: UNKNOWN
     Route: 065
     Dates: start: 20191018, end: 20200111
  5. SIRTURO [Suspect]
     Active Substance: BEDAQUILINE FUMARATE
     Indication: TUBERCULOSIS
     Route: 048
     Dates: start: 20191018, end: 2019
  6. CALCIUM PARA-AMINOSALICYLATE HYDRATE [Concomitant]
     Indication: TUBERCULOSIS
     Route: 048
     Dates: start: 20191018
  7. CYCLOSERINE. [Concomitant]
     Active Substance: CYCLOSERINE
     Indication: TUBERCULOSIS
     Route: 048
     Dates: start: 20191018

REACTIONS (1)
  - Renal impairment [Recovering/Resolving]

NARRATIVE: CASE EVENT DATE: 20191213
